FAERS Safety Report 9369349 (Version 1)
Quarter: 2013Q2

REPORT INFORMATION
  Report Type: Spontaneous
  Country: US (occurrence: US)
  Receive Date: 20130626
  Receipt Date: 20130626
  Transmission Date: 20140414
  Serious: Yes (Other)
  Sender: FDA-Public Use
  Company Number: US-MYLANLABS-2013S1013437

PATIENT
  Age: 53 Year
  Sex: Male

DRUGS (5)
  1. MITOXANTRONE [Suspect]
     Indication: ACUTE MYELOID LEUKAEMIA
     Route: 065
  2. ETOPOSIDE [Suspect]
     Indication: ACUTE MYELOID LEUKAEMIA
     Route: 065
  3. CYTARABINE [Suspect]
     Indication: ACUTE MYELOID LEUKAEMIA
     Route: 065
  4. LENALIDOMIDE [Suspect]
     Indication: ACUTE MYELOID LEUKAEMIA
     Route: 065
  5. SORAFENIB [Suspect]
     Indication: ACUTE MYELOID LEUKAEMIA
     Route: 065

REACTIONS (1)
  - Acute febrile neutrophilic dermatosis [Unknown]
